FAERS Safety Report 19566396 (Version 1)
Quarter: 2021Q3

REPORT INFORMATION
  Report Type: Spontaneous
  Country: IT (occurrence: IT)
  Receive Date: 20210716
  Receipt Date: 20210716
  Transmission Date: 20211014
  Serious: Yes (Life-Threatening, Hospitalization, Other)
  Sender: FDA-Public Use
  Company Number: IT-ACCORD-231819

PATIENT
  Age: 80 Year
  Sex: Male

DRUGS (3)
  1. FLUOROURACIL. [Suspect]
     Active Substance: FLUOROURACIL
     Indication: COLORECTAL CANCER STAGE IV
     Dosage: CYCLE, 46 H OF CONTINUOUS INFUSION, EVERY TWO?WEEKS
     Route: 040
  2. FOLINIC ACID [Concomitant]
     Active Substance: LEUCOVORIN
     Indication: COLORECTAL CANCER STAGE IV
     Dosage: CYCLE EVERY TWO?WEEKS
     Route: 040
  3. OXALIPLATIN. [Suspect]
     Active Substance: OXALIPLATIN
     Indication: COLORECTAL CANCER STAGE IV
     Dosage: CYCLE EVERY TWO?WEEKS
     Route: 040

REACTIONS (4)
  - Acute coronary syndrome [Recovered/Resolved]
  - Bundle branch block left [Recovered/Resolved]
  - Coronary artery stenosis [Recovered/Resolved]
  - Electrocardiogram ST segment elevation [Recovered/Resolved]
